FAERS Safety Report 15154356 (Version 1)
Quarter: 2018Q3

REPORT INFORMATION
  Report Type: Spontaneous
  Country: IT (occurrence: IT)
  Receive Date: 20180717
  Receipt Date: 20180717
  Transmission Date: 20181010
  Serious: Yes (Hospitalization)
  Sender: FDA-Public Use
  Company Number: IT-ELI_LILLY_AND_COMPANY-IT201807002216

PATIENT
  Age: 28 Year
  Sex: Female

DRUGS (2)
  1. DULOXETINE HYDROCHLORIDE. [Suspect]
     Active Substance: DULOXETINE HYDROCHLORIDE
     Indication: DEPRESSION
     Dosage: UNK UNK, UNKNOWN
     Route: 048
     Dates: start: 20180404, end: 20180405
  2. FLURAZEPAM MONOHYDROCHLORIDE [Suspect]
     Active Substance: FLURAZEPAM MONOHYDROCHLORIDE
     Indication: INSOMNIA
     Dosage: 29 DF, UNKNOWN
     Route: 048
     Dates: start: 20180404, end: 20180405

REACTIONS (3)
  - Drug abuse [Recovering/Resolving]
  - Intentional overdose [Unknown]
  - Sopor [Recovering/Resolving]

NARRATIVE: CASE EVENT DATE: 20180404
